FAERS Safety Report 13351091 (Version 2)
Quarter: 2017Q2

REPORT INFORMATION
  Report Type: Spontaneous
  Country: JP (occurrence: JP)
  Receive Date: 20170320
  Receipt Date: 20170428
  Transmission Date: 20170830
  Serious: Yes (Other)
  Sender: FDA-Public Use
  Company Number: JP-ASTRAZENECA-2017SE12013

PATIENT
  Age: 85 Year
  Sex: Female

DRUGS (16)
  1. MEROPEN [Suspect]
     Active Substance: MEROPENEM
     Indication: THERAPEUTIC PROCEDURE
     Route: 041
     Dates: start: 20160229, end: 20160307
  2. SODIUM CHLORIDE. [Concomitant]
     Active Substance: SODIUM CHLORIDE
  3. CEFTRIAXONE SODIUM. [Concomitant]
     Active Substance: CEFTRIAXONE SODIUM
     Indication: URINARY TRACT INFECTION
     Route: 041
     Dates: start: 20160410, end: 20160411
  4. CORTRIL [Concomitant]
     Active Substance: HYDROCORTISONE
     Indication: HYPOPITUITARISM
     Route: 048
  5. CEFAMEZIN ALPHA [Concomitant]
     Active Substance: CEFAZOLIN SODIUM
     Indication: URINARY TRACT INFECTION
     Route: 041
     Dates: start: 20160407, end: 20160409
  6. WARFARIN [Interacting]
     Active Substance: WARFARIN
     Indication: BASILAR ARTERY OCCLUSION
     Route: 048
     Dates: end: 20160308
  7. DRIED THYROID [Concomitant]
  8. MEROPEN [Interacting]
     Active Substance: MEROPENEM
     Indication: URINARY TRACT INFECTION
     Route: 041
     Dates: start: 20160229, end: 20160307
  9. MEROPEN [Interacting]
     Active Substance: MEROPENEM
     Indication: URINARY TRACT INFECTION
     Route: 041
     Dates: start: 20160411, end: 20160424
  10. MAGMITT [Concomitant]
     Active Substance: MAGNESIUM OXIDE
     Indication: CONSTIPATION
     Route: 048
  11. KAYTWO [Concomitant]
     Active Substance: MENATETRENONE
  12. LANSOPRAZOLE. [Concomitant]
     Active Substance: LANSOPRAZOLE
     Indication: GASTRIC ULCER
     Route: 048
  13. MEROPEN [Interacting]
     Active Substance: MEROPENEM
     Indication: THERAPEUTIC PROCEDURE
     Route: 041
     Dates: start: 20160411, end: 20160424
  14. WARFARIN [Interacting]
     Active Substance: WARFARIN
     Indication: BASILAR ARTERY OCCLUSION
     Dosage: 2 MG
     Route: 048
     Dates: start: 20160402, end: 20160404
  15. WARFARIN [Interacting]
     Active Substance: WARFARIN
     Indication: BASILAR ARTERY OCCLUSION
     Dosage: 3 MG
     Route: 048
     Dates: start: 20160405, end: 20160415
  16. ALEVIATIN [Concomitant]
     Active Substance: PHENYTOIN SODIUM
     Indication: EPILEPSY
     Route: 048

REACTIONS (2)
  - Prothrombin time prolonged [Recovered/Resolved]
  - Drug interaction [Recovered/Resolved]

NARRATIVE: CASE EVENT DATE: 20160307
